FAERS Safety Report 8228771-7 (Version None)
Quarter: 2012Q1

REPORT INFORMATION
  Report Type: 
  Country: None (occurrence: None)
  Receive Date: 20120322
  Receipt Date: 20120312
  Transmission Date: 20120608
  Serious: Yes (Other)
  Sender: FDA-Public Use
  Company Number: CA-GLAXOSMITHKLINE-A0934834A

PATIENT
  Sex: Female
  Weight: 76.4 kg

DRUGS (4)
  1. SYNTHROID [Concomitant]
     Indication: HYPOTENSION
  2. VOTRIENT [Suspect]
     Indication: RENAL CANCER METASTATIC
     Dosage: 800MG PER DAY
     Route: 048
     Dates: start: 20110608, end: 20120305
  3. PERINDOPRIL ERBUMINE [Concomitant]
     Indication: HYPERTENSION
     Dosage: 16MG PER DAY
  4. HYDROCHLOROTHIAZIDE [Concomitant]
     Dosage: 25MG PER DAY

REACTIONS (5)
  - GENERAL PHYSICAL HEALTH DETERIORATION [None]
  - PANCREATITIS [None]
  - FATIGUE [None]
  - HYPERTENSION [None]
  - NEOPLASM MALIGNANT [None]
